FAERS Safety Report 25051755 (Version 1)
Quarter: 2025Q1

REPORT INFORMATION
  Report Type: Report from Study
  Country: CA (occurrence: CA)
  Receive Date: 20250307
  Receipt Date: 20250307
  Transmission Date: 20250408
  Serious: Yes (Other)
  Sender: TAKEDA
  Company Number: CA-TAKEDA-2025TUS020662

PATIENT
  Sex: Female

DRUGS (1)
  1. VEDOLIZUMAB [Suspect]
     Active Substance: VEDOLIZUMAB
     Indication: Colitis ulcerative

REACTIONS (8)
  - Melaena [Unknown]
  - Malaise [Unknown]
  - Frequent bowel movements [Unknown]
  - Constipation [Unknown]
  - Nausea [Unknown]
  - Abdominal pain [Unknown]
  - Abdominal distension [Unknown]
  - Abdominal pain upper [Unknown]
